FAERS Safety Report 17163692 (Version 3)
Quarter: 2020Q2

REPORT INFORMATION
  Report Type: Spontaneous
  Country: AU (occurrence: AU)
  Receive Date: 20191217
  Receipt Date: 20200530
  Transmission Date: 20200713
  Serious: Yes (Death, Life-Threatening, Hospitalization, Disabling, Other)
  Sender: FDA-Public Use
  Company Number: NVSC2019AU070677

PATIENT
  Age: 69 Year
  Sex: Female
  Weight: 55 kg

DRUGS (4)
  1. KISQALI [Suspect]
     Active Substance: RIBOCICLIB
     Indication: BREAST CANCER METASTATIC
     Dosage: 200 MG, TID
     Route: 048
     Dates: start: 20190919, end: 20191022
  2. OXYCONTIN [Concomitant]
     Active Substance: OXYCODONE HYDROCHLORIDE
     Indication: PAIN
     Dosage: 50 MG, BID
     Route: 048
  3. KISQALI [Suspect]
     Active Substance: RIBOCICLIB
     Dosage: 200 MG, TID
     Route: 048
     Dates: start: 20190921, end: 20191022
  4. PREGABALIN. [Concomitant]
     Active Substance: PREGABALIN
     Indication: PAIN
     Dosage: 75 MG/100MG
     Route: 048

REACTIONS (9)
  - Bone pain [Unknown]
  - Aortic valve incompetence [Fatal]
  - Endocarditis [Fatal]
  - Metastases to bone [Unknown]
  - Pyrexia [Unknown]
  - Pneumonitis [Fatal]
  - Acute respiratory distress syndrome [Fatal]
  - Breast cancer metastatic [Fatal]
  - Dyspnoea [Unknown]

NARRATIVE: CASE EVENT DATE: 201908
